FAERS Safety Report 6155590-8 (Version None)
Quarter: 2009Q2

REPORT INFORMATION
  Report Type: 
  Country: None (occurrence: None)
  Receive Date: 20090410
  Receipt Date: 20090410
  Transmission Date: 20091009
  Serious: Yes (Other)
  Sender: FDA-Public Use
  Company Number: None

PATIENT
  Sex: Male
  Weight: 2.33 kg

DRUGS (7)
  1. AVASTIN [Suspect]
     Indication: RETINOPATHY OF PREMATURITY
     Dosage: 0.75MG/0.03ML ONCE, ROUTE: 046
     Dates: start: 20090211
  2. MAXITROL [Concomitant]
  3. PLUCONAZOLE [Concomitant]
  4. MEROPENEM [Concomitant]
  5. PREVACID [Concomitant]
  6. PHENOBARBITAL [Concomitant]
  7. TOBRAMYCIN [Concomitant]

REACTIONS (1)
  - CORNEAL EPITHELIUM DEFECT [None]
